FAERS Safety Report 22049838 (Version 1)
Quarter: 2023Q1

REPORT INFORMATION
  Report Type: Spontaneous
  Country: US (occurrence: US)
  Receive Date: 20230301
  Receipt Date: 20230301
  Transmission Date: 20230418
  Serious: Yes (Other)
  Sender: FDA-Public Use
  Company Number: US-PFIZER INC-202300085649

PATIENT
  Age: 54 Month
  Sex: Female

DRUGS (10)
  1. THYMOCYTE IMMUNE GLOBULIN NOS [Suspect]
     Active Substance: THYMOCYTE IMMUNE GLOBULIN NOS
     Indication: Niemann-Pick disease
     Dosage: 1 DOSE
     Route: 042
  2. BUSULFAN [Concomitant]
     Active Substance: BUSULFAN
     Indication: Immunosuppressant drug therapy
     Dosage: 16 MG/KG
     Route: 048
  3. BUSULFAN [Concomitant]
     Active Substance: BUSULFAN
     Dosage: ADDITIONAL HIGH DOSE 1
     Route: 048
  4. BUSULFAN [Concomitant]
     Active Substance: BUSULFAN
     Dosage: ADDITIONAL HIGH DOSE 2
     Route: 048
  5. BUSULFAN [Concomitant]
     Active Substance: BUSULFAN
     Dosage: ADDITIONAL HIGH DOSE 3
     Route: 048
  6. BUSULFAN [Concomitant]
     Active Substance: BUSULFAN
     Dosage: ADDITIONAL HIGH DOSE 4
     Route: 048
  7. CYTOXAN [Concomitant]
     Active Substance: CYCLOPHOSPHAMIDE
     Indication: Immunosuppressant drug therapy
     Dosage: 200 MG/KG
  8. METHOTREXATE SODIUM [Concomitant]
     Active Substance: METHOTREXATE SODIUM
     Indication: Prophylaxis against graft versus host disease
     Dosage: 10 MG/M2 ON DAYS 3,6,11 AND 18
  9. MYCOPHENOLATE MOFETIL [Concomitant]
     Active Substance: MYCOPHENOLATE MOFETIL
     Indication: Prophylaxis against graft versus host disease
     Dosage: UNK
  10. CYCLOSPORINE [Concomitant]
     Active Substance: CYCLOSPORINE
     Indication: Prophylaxis against graft versus host disease
     Dosage: UNK

REACTIONS (3)
  - Hypoxia [Recovered/Resolved]
  - Pulmonary oedema [Recovered/Resolved]
  - Off label use [Unknown]
